FAERS Safety Report 21423374 (Version 1)
Quarter: 2022Q4

REPORT INFORMATION
  Report Type: Spontaneous
  Country: US (occurrence: None)
  Receive Date: 20221006
  Receipt Date: 20221006
  Transmission Date: 20230112
  Serious: No
  Sender: FDA-Public Use
  Company Number: None

PATIENT
  Age: 26 Year
  Sex: Female
  Weight: 56.93 kg

DRUGS (8)
  1. GLEOSTINE [Suspect]
     Active Substance: LOMUSTINE
     Indication: Brain neoplasm malignant
     Dosage: OTHER FREQUENCY : Q6WKS;?
     Route: 048
     Dates: start: 202204
  2. CIPROFLOXACIN [Concomitant]
     Active Substance: CIPROFLOXACIN
  3. DEXAMETHASONE [Concomitant]
  4. LEXAPRO [Concomitant]
  5. OLANZAPINE [Concomitant]
  6. POTASSIUM CHLORIDE [Concomitant]
  7. VISTARIL [Concomitant]
  8. ZOFRAN [Concomitant]

REACTIONS (1)
  - Hospice care [None]
